FAERS Safety Report 5993051-7 (Version None)
Quarter: 2008Q4

REPORT INFORMATION
  Report Type: 
  Country: None (occurrence: None)
  Receive Date: 20081212
  Receipt Date: 20081209
  Transmission Date: 20090506
  Serious: Yes (Life-Threatening)
  Sender: FDA-Public Use
  Company Number: DE-BRISTOL-MYERS SQUIBB COMPANY-14418354

PATIENT
  Age: 48 Year
  Sex: Male

DRUGS (3)
  1. ABILIFY [Suspect]
     Indication: SCHIZOPHRENIA
     Dosage: FORMULATION: TAB
     Route: 048
     Dates: start: 20080501
  2. CLOZAPINE [Concomitant]
     Indication: SCHIZOPHRENIA
     Dosage: FORMULATION: TAB
     Route: 048
     Dates: start: 19850101
  3. SERTRALINE [Concomitant]
     Indication: SCHIZOPHRENIA
     Dosage: FORMULATION: TAB
     Route: 048
     Dates: start: 20080201

REACTIONS (1)
  - CEREBRAL HAEMORRHAGE [None]
